FAERS Safety Report 12727087 (Version 2)
Quarter: 2016Q3

REPORT INFORMATION
  Report Type: Spontaneous
  Country: BG (occurrence: BG)
  Receive Date: 20160909
  Receipt Date: 20160915
  Transmission Date: 20161109
  Serious: Yes (Other)
  Sender: FDA-Public Use
  Company Number: BG-ROCHE-1825660

PATIENT
  Age: 4 Year
  Sex: Male

DRUGS (3)
  1. TAMIFLU [Suspect]
     Active Substance: OSELTAMIVIR PHOSPHATE
     Indication: INFLUENZA
     Route: 065
  2. PULMICORT TURBUHALER [Concomitant]
     Active Substance: BUDESONIDE
     Dosage: PULMCORT AND PHYSIOLOGICAL SERUM INHALATION
     Route: 055
     Dates: start: 201602
  3. TAMIFLU [Suspect]
     Active Substance: OSELTAMIVIR PHOSPHATE
     Indication: TONSILLITIS STREPTOCOCCAL

REACTIONS (1)
  - Haematemesis [Recovered/Resolved]

NARRATIVE: CASE EVENT DATE: 2016
